FAERS Safety Report 17300597 (Version 1)
Quarter: 2020Q1

REPORT INFORMATION
  Report Type: Spontaneous
  Country: US (occurrence: US)
  Receive Date: 20200122
  Receipt Date: 20200122
  Transmission Date: 20200409
  Serious: No
  Sender: FDA-Public Use
  Company Number: US-ELI_LILLY_AND_COMPANY-US202001009493

PATIENT
  Sex: Female

DRUGS (1)
  1. OLUMIANT [Suspect]
     Active Substance: BARICITINIB
     Indication: RHEUMATOID ARTHRITIS
     Dosage: 1 DOSAGE FORM, DAILY
     Route: 048
     Dates: start: 201912

REACTIONS (3)
  - Tinnitus [Unknown]
  - Hypersensitivity [Unknown]
  - Cystitis [Recovered/Resolved]

NARRATIVE: CASE EVENT DATE: 201912
